FAERS Safety Report 11843452 (Version 1)
Quarter: 2015Q4

REPORT INFORMATION
  Report Type: Spontaneous
  Country: US (occurrence: US)
  Receive Date: 20151217
  Receipt Date: 20151217
  Transmission Date: 20160305
  Serious: No
  Sender: FDA-Public Use
  Company Number: US-009507513-1511USA011035

PATIENT
  Sex: Female

DRUGS (1)
  1. NEXPLANON [Suspect]
     Active Substance: ETONOGESTREL
     Dosage: 1 DF/ 3 YEARS
     Route: 059
     Dates: start: 20150917, end: 20151117

REACTIONS (2)
  - Device breakage [Recovered/Resolved]
  - No adverse event [Unknown]
